FAERS Safety Report 8970714 (Version 1)
Quarter: 2012Q4

REPORT INFORMATION
  Report Type: 
  Country: US (occurrence: US)
  Receive Date: 20121218
  Receipt Date: 20121218
  Transmission Date: 20130627
  Serious: No
  Sender: FDA-Public Use
  Company Number: US-BRISTOL-MYERS SQUIBB COMPANY-16515348

PATIENT
  Age: 41 Year
  Sex: Male

DRUGS (8)
  1. ABILIFY [Suspect]
     Indication: BIPOLAR DISORDER
     Dates: start: 2009, end: 2010
  2. ABILIFY [Suspect]
     Indication: PSYCHOTIC DISORDER
     Dates: start: 2009, end: 2010
  3. ZYPREXA [Concomitant]
     Indication: PSYCHOTIC DISORDER
     Dates: start: 2007, end: 2009
  4. ZYPREXA [Concomitant]
     Indication: BIPOLAR DISORDER
     Dates: start: 2007, end: 2009
  5. LISINOPRIL [Concomitant]
     Indication: BLOOD PRESSURE ABNORMAL
  6. LAMICTAL [Concomitant]
     Indication: MOOD SWINGS
  7. KLONOPIN [Concomitant]
     Indication: PANIC ATTACK
  8. KLONOPIN [Concomitant]
     Indication: ANXIETY

REACTIONS (1)
  - Drug ineffective [Unknown]
